FAERS Safety Report 9447926 (Version 4)
Quarter: 2013Q4

REPORT INFORMATION
  Report Type: Spontaneous
  Country: DE (occurrence: None)
  Receive Date: 20130806
  Receipt Date: 20131211
  Transmission Date: 20140711
  Serious: Yes (Hospitalization, Other)
  Sender: FDA-Public Use
  Company Number: 2013DE002192

PATIENT
  Age: 73 Year
  Sex: Male
  Weight: 77 kg

DRUGS (6)
  1. PONATINIB [Suspect]
     Indication: CHRONIC MYELOID LEUKAEMIA
     Route: 048
     Dates: start: 20110624
  2. XARELTO (RIBAROXABAN) [Concomitant]
  3. ALLOPURINOL (ALLOPURINOL) [Concomitant]
  4. L-THYROXINE (L-THYROXINE) [Concomitant]
  5. BISOPROLOL (BISOPROLOL) [Concomitant]
  6. CLEXANE (ENOXAPARIN SODIUM) [Concomitant]

REACTIONS (4)
  - Venous thrombosis [None]
  - Blindness [None]
  - Cataract [None]
  - Retinal artery occlusion [None]
